FAERS Safety Report 8532814-0 (Version None)
Quarter: 2012Q3

REPORT INFORMATION
  Report Type: 
  Country: None (occurrence: None)
  Receive Date: 20120711
  Receipt Date: 20111118
  Transmission Date: 20120928
  Serious: Yes (Other)
  Sender: FDA-Public Use
  Company Number: 2011-07765

PATIENT
  Age: 41 Year
  Sex: Female

DRUGS (2)
  1. IMOGAM RABIES-HT [Suspect]
     Indication: PRODUCT USED FOR UNKNOWN INDICATION
     Dates: start: 20110823
  2. IMOVAX RABIES I.D. [Suspect]
     Indication: PRODUCT USED FOR UNKNOWN INDICATION
     Dates: start: 20110823

REACTIONS (4)
  - PARAESTHESIA ORAL [None]
  - HYPOAESTHESIA [None]
  - PHARYNGEAL OEDEMA [None]
  - DYSPHONIA [None]
